FAERS Safety Report 8133009-5 (Version None)
Quarter: 2012Q1

REPORT INFORMATION
  Report Type: 
  Country: None (occurrence: None)
  Receive Date: 20120213
  Receipt Date: 20120206
  Transmission Date: 20120608
  Serious: Yes (Other)
  Sender: FDA-Public Use
  Company Number: PHHY2012FR007208

PATIENT
  Sex: Female
  Weight: 61 kg

DRUGS (1)
  1. EXJADE [Suspect]
     Indication: HAEMOCHROMATOSIS
     Dosage: 1000 MG, DAILY
     Route: 048
     Dates: start: 20111015, end: 20111028

REACTIONS (8)
  - GENERALISED ERYTHEMA [None]
  - PYREXIA [None]
  - PURPURA [None]
  - IATROGENIC INFECTION [None]
  - PAPULE [None]
  - RASH [None]
  - PRURITUS GENERALISED [None]
  - TOXIC SKIN ERUPTION [None]
